FAERS Safety Report 17685347 (Version 3)
Quarter: 2021Q3

REPORT INFORMATION
  Report Type: Spontaneous
  Country: US (occurrence: US)
  Receive Date: 20200420
  Receipt Date: 20210805
  Transmission Date: 20211014
  Serious: Yes (Other)
  Sender: FDA-Public Use
  Company Number: US-SA-2020SA098842

PATIENT
  Age: 37 Year
  Sex: Female
  Weight: 90.7 kg

DRUGS (19)
  1. TAXOTERE [Suspect]
     Active Substance: DOCETAXEL
     Dosage: 75 MG, Q3W
     Route: 042
     Dates: start: 20081006, end: 20081006
  2. DIPHENHYDRAMINE. [Concomitant]
     Active Substance: DIPHENHYDRAMINE
     Dosage: 50 MG
     Route: 048
  3. ONDANSETRON [Concomitant]
     Active Substance: ONDANSETRON
     Dosage: 8 MG
     Route: 048
  4. DIPHENHYDRAMINE. [Concomitant]
     Active Substance: DIPHENHYDRAMINE
     Dosage: 50 MG
     Route: 048
  5. ONDANSETRON [Concomitant]
     Active Substance: ONDANSETRON
     Dosage: 8 MG
     Route: 048
  6. NS [Concomitant]
     Active Substance: SODIUM CHLORIDE
     Dosage: 250 ML
  7. NS [Concomitant]
     Active Substance: SODIUM CHLORIDE
     Dosage: 250 ML
  8. DIPHENHYDRAMINE. [Concomitant]
     Active Substance: DIPHENHYDRAMINE
     Dosage: 50 MG
     Route: 048
  9. TAXOTERE [Suspect]
     Active Substance: DOCETAXEL
     Indication: BREAST CANCER FEMALE
     Dosage: 75 MG, Q3W
     Route: 042
     Dates: start: 20080804, end: 20080804
  10. NS [Concomitant]
     Active Substance: SODIUM CHLORIDE
     Dosage: 250 ML
  11. DEXAMETHASONE. [Concomitant]
     Active Substance: DEXAMETHASONE
     Dosage: 1 0 IV IF PA1IENT DID NOT TAKE ORAL DEXAMETHASONE
  12. DEXAMETHASONE. [Concomitant]
     Active Substance: DEXAMETHASONE
     Dosage: 1 0 IV IF PA1IENT DID NOT TAKE ORAL DEXAMETHASONE
  13. DEXAMETHASONE. [Concomitant]
     Active Substance: DEXAMETHASONE
     Dosage: 1 0 IV IF PA1IENT DID NOT TAKE ORAL DEXAMETHASONE
  14. DIPHENHYDRAMINE. [Concomitant]
     Active Substance: DIPHENHYDRAMINE
     Dosage: 50 MG
     Route: 048
  15. NS [Concomitant]
     Active Substance: SODIUM CHLORIDE
     Dosage: 250 ML
  16. GRANISETRON [Concomitant]
     Active Substance: GRANISETRON
     Dosage: 2 MG
     Route: 048
  17. ONDANSETRON [Concomitant]
     Active Substance: ONDANSETRON
     Dosage: 8 MG
     Route: 048
  18. MOTRIN CHILDREN [Concomitant]
     Active Substance: IBUPROFEN
     Dosage: UNK
     Dates: start: 20010101
  19. DEXAMETHASONE. [Concomitant]
     Active Substance: DEXAMETHASONE
     Dosage: 1 0 IV IF PA1IENT DID NOT TAKE ORAL DEXAMETHASONE

REACTIONS (1)
  - Alopecia [Recovering/Resolving]

NARRATIVE: CASE EVENT DATE: 20090601
